FAERS Safety Report 8458027-9 (Version None)
Quarter: 2012Q2

REPORT INFORMATION
  Report Type: 
  Country: None (occurrence: None)
  Receive Date: 20120615
  Receipt Date: 20120601
  Transmission Date: 20120825
  Serious: Yes (Life-Threatening, Congenital Anomaly)
  Sender: FDA-Public Use
  Company Number: 2012MA007080

PATIENT

DRUGS (3)
  1. FLUOXETINE HYDROCHLORIDE [Suspect]
     Dosage: 60 MG;QD;TRPL
     Route: 064
  2. METHADONE HCL [Concomitant]
  3. DIAZEPAM [Concomitant]

REACTIONS (14)
  - BRADYCARDIA NEONATAL [None]
  - STRIDOR [None]
  - POSTURE ABNORMAL [None]
  - MATERNAL DRUGS AFFECTING FOETUS [None]
  - NEONATAL RESPIRATORY DISTRESS SYNDROME [None]
  - WEIGHT DECREASED [None]
  - CRYING [None]
  - ELECTROCARDIOGRAM QT PROLONGED [None]
  - METABOLIC ACIDOSIS [None]
  - CONVULSION NEONATAL [None]
  - DIARRHOEA NEONATAL [None]
  - NEONATAL TACHYPNOEA [None]
  - MUSCULOSKELETAL STIFFNESS [None]
  - HYPERTONIA NEONATAL [None]
